FAERS Safety Report 4839353-9 (Version None)
Quarter: 2005Q4

REPORT INFORMATION
  Report Type: 
  Country: None (occurrence: None)
  Receive Date: 20051129
  Receipt Date: 20050214
  Transmission Date: 20060501
  Serious: No
  Sender: FDA-Public Use
  Company Number: US-GLAXOSMITHKLINE-A0542909A

PATIENT
  Sex: Male

DRUGS (1)
  1. WELLBUTRIN SR [Suspect]
     Indication: DEPRESSION
     Route: 048

REACTIONS (3)
  - CONSTIPATION [None]
  - HEPATIC PAIN [None]
  - HYPERCHLORHYDRIA [None]
